FAERS Safety Report 10172156 (Version 2)
Quarter: 2014Q2

REPORT INFORMATION
  Report Type: Spontaneous
  Country: CZ (occurrence: CZ)
  Receive Date: 20140515
  Receipt Date: 20140526
  Transmission Date: 20141212
  Serious: Yes (Hospitalization)
  Sender: FDA-Public Use
  Company Number: PHHY2014CZ056120

PATIENT
  Age: 50 Year
  Sex: Male
  Weight: 110 kg

DRUGS (11)
  1. HEPARIN [Suspect]
     Indication: ANTICOAGULANT THERAPY
     Dosage: 40000 IU, UNK
     Route: 041
  2. HEPARIN [Suspect]
     Route: 058
  3. MESALAZINE [Concomitant]
     Dosage: 3 G, UNK
     Route: 048
  4. MESALAZINE [Concomitant]
     Dosage: 4 G, UNK
  5. OMEPRAZOLE [Concomitant]
  6. CLOPIDOGREL [Concomitant]
     Dosage: 75 MG, UNK
  7. PREDNISONE [Concomitant]
     Dosage: 60 MG, UNK
     Route: 048
  8. METRONIDAZOLE [Concomitant]
  9. CIPROFLOXACIN [Concomitant]
  10. CORTICOSTEROIDS [Concomitant]
  11. METHYLPREDISONE [Concomitant]

REACTIONS (12)
  - Megacolon [Recovered/Resolved]
  - Cardiovascular disorder [Recovered/Resolved]
  - Pulmonary embolism [Recovered/Resolved]
  - Intestinal haemorrhage [Recovered/Resolved]
  - Hypokalaemia [Recovered/Resolved]
  - Leukocytosis [Recovered/Resolved]
  - Ileus paralytic [Recovered/Resolved]
  - Oliguria [Recovered/Resolved]
  - Hypotension [Recovered/Resolved]
  - Colitis ulcerative [Recovered/Resolved]
  - Coagulopathy [Recovered/Resolved]
  - Anaemia [Recovered/Resolved]
